FAERS Safety Report 10790316 (Version 1)
Quarter: 2015Q1

REPORT INFORMATION
  Report Type: Spontaneous
  Country: CN (occurrence: CN)
  Receive Date: 20150212
  Receipt Date: 20150212
  Transmission Date: 20150721
  Serious: Yes (Other)
  Sender: FDA-Public Use
  Company Number: CN-MUNDIPHARMA DS AND PHARMACOVIGILANCE-GBR-2015-0025458

PATIENT
  Age: 49 Year
  Sex: Male
  Weight: 60 kg

DRUGS (11)
  1. MS CONTIN [Suspect]
     Active Substance: MORPHINE SULFATE
     Dosage: 120 MG, Q12H
     Route: 065
  2. HEADACHE POWDER [Suspect]
     Active Substance: UNSPECIFIED INGREDIENT
     Indication: PAIN
     Route: 065
  3. MORPHINE [Suspect]
     Active Substance: MORPHINE
     Route: 065
  4. MORPHINE [Suspect]
     Active Substance: MORPHINE
     Indication: PAIN
     Route: 042
  5. GABAPENTIN. [Suspect]
     Active Substance: GABAPENTIN
     Indication: PAIN
     Route: 065
  6. AMINOPYRINE [Suspect]
     Active Substance: AMINOPYRINE
     Indication: ABDOMINAL PAIN
     Route: 065
  7. MORPHINE [Suspect]
     Active Substance: MORPHINE
     Indication: PAIN
     Dosage: 30 MG, UNK
     Route: 048
  8. OXYCONTIN [Suspect]
     Active Substance: OXYCODONE HYDROCHLORIDE
     Indication: PAIN
     Dosage: 30 MG, Q12H
     Route: 065
  9. MS CONTIN [Suspect]
     Active Substance: MORPHINE SULFATE
     Dosage: 60 MG, Q12H
     Route: 065
  10. MORPHINE [Suspect]
     Active Substance: MORPHINE
     Dosage: 5 MG, UNK
     Route: 042
  11. MS CONTIN [Suspect]
     Active Substance: MORPHINE SULFATE
     Indication: PAIN
     Dosage: 80 MG, Q12H
     Route: 065

REACTIONS (8)
  - Mental disorder [Unknown]
  - Hallucination [Recovered/Resolved]
  - Depression [Unknown]
  - Drug dependence [Unknown]
  - Somnolence [Recovered/Resolved]
  - Gastrointestinal haemorrhage [Unknown]
  - Anxiety [Unknown]
  - Drug ineffective [Unknown]

NARRATIVE: CASE EVENT DATE: 20140627
